FAERS Safety Report 16071079 (Version 2)
Quarter: 2019Q1

REPORT INFORMATION
  Report Type: Spontaneous
  Country: US (occurrence: US)
  Receive Date: 20190314
  Receipt Date: 20190328
  Transmission Date: 20190418
  Serious: No
  Sender: FDA-Public Use
  Company Number: US-PFIZER INC-2019103973

PATIENT
  Age: 53 Year
  Sex: Female

DRUGS (1)
  1. XELJANZ XR [Suspect]
     Active Substance: TOFACITINIB CITRATE
     Dosage: 11 MG, UNK
     Dates: start: 201902

REACTIONS (6)
  - Paraesthesia [Unknown]
  - Nerve compression [Unknown]
  - Sinusitis [Unknown]
  - Swelling face [Unknown]
  - Condition aggravated [Unknown]
  - Arthralgia [Unknown]
